FAERS Safety Report 20935605 (Version 2)
Quarter: 2022Q2

REPORT INFORMATION
  Report Type: Spontaneous
  Country: US (occurrence: US)
  Receive Date: 20220609
  Receipt Date: 20220625
  Transmission Date: 20220720
  Serious: Yes (Life-Threatening, Other)
  Sender: FDA-Public Use
  Company Number: US-TEVA-2022-US-2043570

PATIENT
  Age: 78 Year
  Sex: Female

DRUGS (1)
  1. AMIODARONE [Suspect]
     Active Substance: AMIODARONE
     Indication: Atrial fibrillation
     Dosage: 200 MILLIGRAM DAILY;
     Route: 048

REACTIONS (3)
  - Pulmonary toxicity [Recovering/Resolving]
  - Weight decreased [Recovering/Resolving]
  - Toxicity to various agents [Unknown]
